FAERS Safety Report 14907377 (Version 1)
Quarter: 2018Q2

REPORT INFORMATION
  Report Type: Spontaneous
  Country: US (occurrence: US)
  Receive Date: 20180427
  Receipt Date: 20180427
  Transmission Date: 20180711
  Serious: Yes (Hospitalization)
  Sender: FDA-Public Use
  Company Number: None

PATIENT
  Age: 36 Year
  Sex: Female
  Weight: 71.67 kg

DRUGS (6)
  1. ENALAPRIL [Concomitant]
     Active Substance: ENALAPRIL
  2. OTROS [Concomitant]
  3. METOPROLOL. [Concomitant]
     Active Substance: METOPROLOL
  4. DEPO-PROVERA [Suspect]
     Active Substance: MEDROXYPROGESTERONE ACETATE
  5. VITAMIN D [Concomitant]
     Active Substance: CHOLECALCIFEROL
  6. FERROUS [Concomitant]
     Active Substance: IRON

REACTIONS (5)
  - Feeling abnormal [None]
  - Gait inability [None]
  - Cerebellar ataxia [None]
  - Quality of life decreased [None]
  - Movement disorder [None]

NARRATIVE: CASE EVENT DATE: 20141104
